FAERS Safety Report 5281652-3 (Version None)
Quarter: 2007Q1

REPORT INFORMATION
  Report Type: 
  Country: None (occurrence: None)
  Receive Date: 20061215
  Receipt Date: 20051025
  Transmission Date: 20070707
  Serious: Yes (Other)
  Sender: FDA-Public Use
  Company Number: HQWYE261326OCT05

PATIENT
  Age: 14 Year
  Sex: Female
  Weight: 52.21 kg

DRUGS (2)
  1. EFFEXOR XR [Suspect]
     Indication: ANXIETY
     Dosage: 37.5 MG 1X PER 1 DAY, ORAL
     Route: 048
     Dates: start: 20051014
  2. AMBIEN [Concomitant]

REACTIONS (1)
  - URINARY RETENTION [None]
